FAERS Safety Report 11646326 (Version 1)
Quarter: 2015Q4

REPORT INFORMATION
  Report Type: Spontaneous
  Country: US (occurrence: US)
  Receive Date: 20151020
  Receipt Date: 20151020
  Transmission Date: 20160304
  Serious: No
  Sender: FDA-Public Use
  Company Number: US-ROCHE-1617671

PATIENT
  Age: 85 Year
  Sex: Male

DRUGS (1)
  1. ESBRIET [Suspect]
     Active Substance: PIRFENIDONE
     Indication: IDIOPATHIC PULMONARY FIBROSIS
     Dosage: 3 CAPSULES
     Route: 048
     Dates: start: 20150623

REACTIONS (5)
  - Nausea [Recovered/Resolved with Sequelae]
  - Rash [Recovered/Resolved with Sequelae]
  - Pruritus [Recovered/Resolved with Sequelae]
  - Fatigue [Recovered/Resolved with Sequelae]
  - Headache [Recovered/Resolved with Sequelae]

NARRATIVE: CASE EVENT DATE: 20150623
